FAERS Safety Report 10154096 (Version 1)
Quarter: 2014Q2

REPORT INFORMATION
  Report Type: Spontaneous
  Country: US (occurrence: None)
  Receive Date: 20140505
  Receipt Date: 20140505
  Transmission Date: 20141212
  Serious: Yes (Hospitalization)
  Sender: FDA-Public Use
  Company Number: None

PATIENT
  Age: 30 Year
  Sex: Male

DRUGS (1)
  1. COUMADIN [Suspect]
     Indication: INTERNATIONAL NORMALISED RATIO ABNORMAL
     Dates: start: 20140416, end: 20140422

REACTIONS (1)
  - Cerebral haemorrhage [None]
